FAERS Safety Report 6011445-0 (Version None)
Quarter: 2008Q4

REPORT INFORMATION
  Report Type: 
  Country: None (occurrence: None)
  Receive Date: 20081217
  Receipt Date: 20081217
  Transmission Date: 20090506
  Serious: Yes (Hospitalization, Disabling)
  Sender: FDA-Public Use
  Company Number: None

PATIENT
  Age: 50 Year
  Sex: Female
  Weight: 54.4316 kg

DRUGS (1)
  1. OSP BOWEL PREP [Suspect]
     Indication: COLONOSCOPY
     Dates: start: 20080712, end: 20080712

REACTIONS (3)
  - DEHYDRATION [None]
  - HEADACHE [None]
  - VOMITING [None]
